FAERS Safety Report 7952639-4 (Version None)
Quarter: 2011Q4

REPORT INFORMATION
  Report Type: 
  Country: None (occurrence: None)
  Receive Date: 20111201
  Receipt Date: 20111128
  Transmission Date: 20120403
  Serious: Yes (Death, Hospitalization, Other)
  Sender: FDA-Public Use
  Company Number: US-PFIZER INC-2008036800

PATIENT
  Sex: Male

DRUGS (1)
  1. CHANTIX [Suspect]
     Indication: SMOKING CESSATION THERAPY
     Dosage: 0.5/1MG
     Dates: start: 20070601, end: 20070901

REACTIONS (7)
  - HALLUCINATION [None]
  - DEPRESSION [None]
  - SUICIDE ATTEMPT [None]
  - MALAISE [None]
  - ANXIETY [None]
  - COMPLETED SUICIDE [None]
  - ABNORMAL BEHAVIOUR [None]
